FAERS Safety Report 11624916 (Version 1)
Quarter: 2015Q4

REPORT INFORMATION
  Report Type: Spontaneous
  Country: US (occurrence: US)
  Receive Date: 20151013
  Receipt Date: 20151013
  Transmission Date: 20160304
  Serious: Yes (Hospitalization)
  Sender: FDA-Public Use
  Company Number: PHHY2015US121837

PATIENT
  Age: 16 Year
  Sex: Male

DRUGS (6)
  1. VERORAB [Suspect]
     Active Substance: RABIES VACCINE
     Route: 065
  2. DOXYCYCLINE. [Suspect]
     Active Substance: DOXYCYCLINE
     Indication: ANIMAL BITE
     Route: 065
  3. VERORAB [Suspect]
     Active Substance: RABIES VACCINE
     Indication: IMMUNISATION
     Route: 065
  4. RABIES IMMUNEGLOBULIN [Suspect]
     Active Substance: HUMAN RABIES VIRUS IMMUNE GLOBULIN
     Indication: IMMUNISATION
     Route: 030
  5. RABAVERT [Suspect]
     Active Substance: RABIES VIRUS STRAIN FLURY LEP ANTIGEN (PROPIOLACTONE INACTIVATED)
     Dosage: 1 DF
     Route: 030
  6. RABAVERT [Suspect]
     Active Substance: RABIES VIRUS STRAIN FLURY LEP ANTIGEN (PROPIOLACTONE INACTIVATED)
     Indication: IMMUNISATION
     Dosage: 1 DF
     Route: 065

REACTIONS (6)
  - Platelet count decreased [Recovered/Resolved]
  - Petechiae [Recovered/Resolved]
  - Contusion [Recovered/Resolved]
  - Purpura [Recovered/Resolved]
  - Immune thrombocytopenic purpura [Recovered/Resolved]
  - Platelet morphology abnormal [Recovered/Resolved]
